FAERS Safety Report 22103331 (Version 1)
Quarter: 2023Q1

REPORT INFORMATION
  Report Type: Spontaneous
  Country: CA (occurrence: CA)
  Receive Date: 20230316
  Receipt Date: 20230316
  Transmission Date: 20230418
  Serious: Yes (Life-Threatening, Hospitalization)
  Sender: FDA-Public Use
  Company Number: CA-BAXTER-2023BAX015688

PATIENT
  Age: 1 Year
  Sex: Female
  Weight: 11 kg

DRUGS (2)
  1. CYCLOPHOSPHAMIDE [Suspect]
     Active Substance: CYCLOPHOSPHAMIDE
     Indication: Neuroblastoma
     Dosage: 154.0 MILLIGRAM, DOSAGE FORM: NOT SPECIFIED
     Route: 042
  2. TOPOTECAN [Suspect]
     Active Substance: TOPOTECAN HYDROCHLORIDE
     Indication: Neuroblastoma
     Dosage: 0.6 MILLIGRAM, DOSAGE FORM: NOT SPECIFIED
     Route: 042

REACTIONS (1)
  - Aplasia [Not Recovered/Not Resolved]
